FAERS Safety Report 15589537 (Version 2)
Quarter: 2018Q4

REPORT INFORMATION
  Report Type: Spontaneous
  Country: CN (occurrence: CN)
  Receive Date: 20181106
  Receipt Date: 20181109
  Transmission Date: 20190205
  Serious: Yes (Other)
  Sender: FDA-Public Use
  Company Number: CN-009507513-1811CHN000551

PATIENT
  Age: 82 Year
  Sex: Male

DRUGS (7)
  1. TIENAM [Suspect]
     Active Substance: CILASTATIN SODIUM\IMIPENEM
     Dosage: 1 GRAM, Q6H
     Route: 042
     Dates: start: 20170706, end: 201707
  2. PANTOPRAZOLE [Concomitant]
     Active Substance: PANTOPRAZOLE
     Indication: ANTACID THERAPY
     Dosage: 40 MILLIGRAM, QD
     Route: 041
     Dates: start: 201707
  3. AMINO ACIDS (UNSPECIFIED) [Concomitant]
     Active Substance: AMINO ACIDS
     Indication: NUTRITIONAL SUPPLEMENTATION
     Dosage: 250 MILLILITER, QD
     Route: 041
     Dates: start: 201707
  4. OCTREOTIDE ACETATE. [Concomitant]
     Active Substance: OCTREOTIDE ACETATE
     Indication: ENZYME INHIBITION
     Dosage: 0.3 MILLIGRAM, Q12H
     Route: 042
     Dates: start: 201707
  5. POTASSIUM CHLORIDE. [Concomitant]
     Active Substance: POTASSIUM CHLORIDE
     Indication: ELECTROLYTE SUBSTITUTION THERAPY
     Dosage: UNK
     Dates: start: 201707
  6. GLUTATHIONE [Concomitant]
     Active Substance: GLUTATHIONE
     Indication: PROPHYLAXIS
     Dosage: 1.8 GRAM, QD
     Route: 041
     Dates: start: 201707
  7. TIENAM [Suspect]
     Active Substance: CILASTATIN SODIUM\IMIPENEM
     Indication: ANTI-INFECTIVE THERAPY
     Dosage: 1 GRAM, Q8H
     Route: 042
     Dates: start: 201707, end: 201707

REACTIONS (2)
  - Coma [Recovered/Resolved]
  - Hallucination [Recovered/Resolved]

NARRATIVE: CASE EVENT DATE: 20170707
